FAERS Safety Report 4953849-0 (Version None)
Quarter: 2006Q1

REPORT INFORMATION
  Report Type: 
  Country: None (occurrence: None)
  Receive Date: 20060321
  Receipt Date: 20060308
  Transmission Date: 20060701
  Serious: Yes (Hospitalization)
  Sender: FDA-Public Use
  Company Number: 163-21880-06030273

PATIENT
  Age: 82 Year
  Sex: Female
  Weight: 74.8435 kg

DRUGS (5)
  1. REVLIMID [Suspect]
     Indication: MYELODYSPLASTIC SYNDROME
     Dosage: 5 MG, TWICE DAILY, ORAL
     Route: 048
     Dates: start: 20060218, end: 20060228
  2. ATENOLOL [Concomitant]
  3. ZOLOFT [Concomitant]
  4. AMBIEN [Concomitant]
  5. IRON (IRON) [Concomitant]

REACTIONS (19)
  - ANOREXIA [None]
  - ASTHENIA [None]
  - BLOOD CALCIUM DECREASED [None]
  - BLOOD POTASSIUM DECREASED [None]
  - DIARRHOEA [None]
  - DYSPNOEA [None]
  - FATIGUE [None]
  - FULL BLOOD COUNT DECREASED [None]
  - HAEMATOCRIT DECREASED [None]
  - INSOMNIA [None]
  - MOBILITY DECREASED [None]
  - NAUSEA [None]
  - PAIN [None]
  - PLATELET COUNT DECREASED [None]
  - PULMONARY OEDEMA [None]
  - RED BLOOD CELL COUNT DECREASED [None]
  - VOMITING [None]
  - WEIGHT DECREASED [None]
  - WHITE BLOOD CELL COUNT DECREASED [None]
